FAERS Safety Report 9434268 (Version 2)
Quarter: 2013Q3

REPORT INFORMATION
  Report Type: Spontaneous
  Country: US (occurrence: US)
  Receive Date: 20130801
  Receipt Date: 20130823
  Transmission Date: 20140515
  Serious: Yes (Other)
  Sender: FDA-Public Use
  Company Number: US-AMGEN-USASP2013052820

PATIENT
  Age: 56 Year
  Sex: Female
  Weight: 62.59 kg

DRUGS (6)
  1. ENBREL [Suspect]
     Indication: PSORIATIC ARTHROPATHY
     Dosage: 50 MG, QWK
     Route: 058
     Dates: start: 20130307, end: 201304
  2. HUMIRA [Concomitant]
     Indication: PSORIASIS
     Dosage: UNK
  3. HUMIRA [Concomitant]
     Indication: PSORIATIC ARTHROPATHY
  4. ENJUVIA [Concomitant]
     Dosage: 0.45 MG, UNK
  5. FOLIC ACID [Concomitant]
     Dosage: UNK
  6. DYAZIDE [Concomitant]
     Dosage: 37.5 - 25

REACTIONS (8)
  - Cellulitis [Recovered/Resolved]
  - Type IV hypersensitivity reaction [Recovered/Resolved]
  - Injection site hypersensitivity [Recovered/Resolved]
  - Injection site pruritus [Recovered/Resolved]
  - Injection site erythema [Recovered/Resolved]
  - Injection site induration [Recovered/Resolved]
  - Injection site warmth [Recovered/Resolved]
  - Injection site swelling [Recovered/Resolved]
